FAERS Safety Report 7516174-X (Version None)
Quarter: 2011Q2

REPORT INFORMATION
  Report Type: 
  Country: None (occurrence: None)
  Receive Date: 20110601
  Receipt Date: 20110524
  Transmission Date: 20111010
  Serious: Yes (Hospitalization)
  Sender: FDA-Public Use
  Company Number: AT-ROCHE-776792

PATIENT
  Sex: Female
  Weight: 49 kg

DRUGS (3)
  1. PEGINTERFERON ALFA-2A [Suspect]
     Dosage: EVERY TUESDAY
     Route: 058
     Dates: start: 20110315
  2. VX-950 [Suspect]
     Dosage: FREUENCY: 3-0-3
     Route: 065
     Dates: start: 20110315
  3. RIBAVIRIN [Suspect]
     Dosage: FREUENCY: 2-0-1
     Route: 065
     Dates: start: 20110315

REACTIONS (2)
  - HYPOKALAEMIA [None]
  - ANAEMIA [None]
